FAERS Safety Report 9308526 (Version 2)
Quarter: 2014Q1

REPORT INFORMATION
  Report Type: Spontaneous
  Country: US (occurrence: US)
  Receive Date: 20130524
  Receipt Date: 20140129
  Transmission Date: 20141002
  Serious: Yes (Other)
  Sender: FDA-Public Use
  Company Number: US-BAYER-2013-064241

PATIENT
  Age: 16 Year
  Sex: Female

DRUGS (5)
  1. YAZ [Suspect]
  2. YASMIN [Suspect]
  3. ZOLOFT [Concomitant]
  4. FLAGYL [Concomitant]
  5. BENTYL [Concomitant]

REACTIONS (8)
  - Gallbladder injury [None]
  - Biliary dyskinesia [None]
  - Deep vein thrombosis [None]
  - Injury [None]
  - General physical health deterioration [None]
  - Pain [None]
  - Anxiety [None]
  - Deformity [None]
